FAERS Safety Report 7742244-7 (Version None)
Quarter: 2011Q3

REPORT INFORMATION
  Report Type: 
  Country: None (occurrence: None)
  Receive Date: 20110912
  Receipt Date: 20110908
  Transmission Date: 20111222
  Serious: Yes (Life-Threatening, Hospitalization)
  Sender: FDA-Public Use
  Company Number: GB-TEVA-299955ISR

PATIENT
  Age: 79 Year
  Sex: Female

DRUGS (2)
  1. LAMOTRIGINE [Suspect]
     Dosage: 100 MILLIGRAM;
     Route: 048
     Dates: start: 20110811, end: 20110822
  2. LAMOTRIGINE [Suspect]
     Indication: CONVULSION
     Dosage: 50 MILLIGRAM;
     Route: 048
     Dates: start: 20110806, end: 20110810

REACTIONS (9)
  - PLATELET COUNT DECREASED [None]
  - SKIN WARM [None]
  - PYREXIA [None]
  - HAEMOGLOBIN DECREASED [None]
  - ESCHERICHIA SEPSIS [None]
  - NEUTROPHIL COUNT DECREASED [None]
  - NEUTROPENIC SEPSIS [None]
  - RASH ERYTHEMATOUS [None]
  - PALLOR [None]
